FAERS Safety Report 21120597 (Version 4)
Quarter: 2022Q3

REPORT INFORMATION
  Report Type: Spontaneous
  Country: CL (occurrence: CL)
  Receive Date: 20220722
  Receipt Date: 20220810
  Transmission Date: 20221026
  Serious: Yes (Other)
  Sender: FDA-Public Use
  Company Number: CL-CURRAX PHARMACEUTICALS LLC-CL-2022CUR022322

PATIENT
  Sex: Female

DRUGS (3)
  1. CONTRAVE [Suspect]
     Active Substance: BUPROPION HYDROCHLORIDE\NALTREXONE HYDROCHLORIDE
     Indication: Product used for unknown indication
     Dosage: 1 (1 DF, IN THE MORNING)
     Route: 048
     Dates: start: 20210913, end: 20210923
  2. FLECTANE [Concomitant]
     Indication: Product used for unknown indication
     Dosage: (EVERY 12 HOURS FOR 3 DAYS)
  3. NARATRIPTAN HYDROCHLORIDE [Concomitant]
     Active Substance: NARATRIPTAN HYDROCHLORIDE
     Indication: Product used for unknown indication
     Dosage: 1 DF, 1 IN 1 D

REACTIONS (4)
  - Transient ischaemic attack [Unknown]
  - Carotid arteriosclerosis [Unknown]
  - Malaise [Unknown]
  - Drug titration error [Unknown]
